FAERS Safety Report 14717951 (Version 2)
Quarter: 2019Q3

REPORT INFORMATION
  Report Type: Spontaneous
  Country: US (occurrence: US)
  Receive Date: 20180404
  Receipt Date: 20190703
  Transmission Date: 20191004
  Serious: No
  Sender: FDA-Public Use
  Company Number: US-SA-2018SA056884

PATIENT
  Age: 45 Year
  Sex: Female

DRUGS (1)
  1. DUPIXENT [Suspect]
     Active Substance: DUPILUMAB
     Indication: DERMATITIS ATOPIC
     Dosage: 300 DF,QOW
     Route: 058
     Dates: start: 20171227

REACTIONS (6)
  - Injection site induration [Unknown]
  - Product dose omission [Unknown]
  - Dermatitis atopic [Unknown]
  - Injection site reaction [Unknown]
  - Injection site erythema [Unknown]
  - Injection site dryness [Unknown]

NARRATIVE: CASE EVENT DATE: 20171227
